FAERS Safety Report 7748193-2 (Version None)
Quarter: 2011Q3

REPORT INFORMATION
  Report Type: 
  Country: None (occurrence: None)
  Receive Date: 20110913
  Receipt Date: 20110729
  Transmission Date: 20111222
  Serious: No
  Sender: FDA-Public Use
  Company Number: GB-ELI_LILLY_AND_COMPANY-GB201108000553

PATIENT
  Age: 41 Year
  Sex: Female

DRUGS (3)
  1. CYMBALTA [Suspect]
     Dosage: UNK, UNKNOWN
  2. AGOMELATIN [Concomitant]
     Dosage: 100 MG, UNK
  3. LEVOTHYROXINE SODIUM [Concomitant]
     Dosage: 75 UG, UNK

REACTIONS (1)
  - LIVER FUNCTION TEST ABNORMAL [None]
